FAERS Safety Report 18137917 (Version 2)
Quarter: 2020Q3

REPORT INFORMATION
  Report Type: Report from Study
  Country: CA (occurrence: CA)
  Receive Date: 20200812
  Receipt Date: 20200908
  Transmission Date: 20201103
  Serious: Yes (Other)
  Sender: FDA-Public Use
  Company Number: CA-GLAXOSMITHKLINE-CA2020AMR093352

PATIENT
  Sex: Female

DRUGS (1)
  1. MEPOLIZUMAB [Suspect]
     Active Substance: MEPOLIZUMAB
     Indication: ASTHMA
     Dosage: 100 MG, Z,MONTHLY
     Route: 042
     Dates: start: 20170724

REACTIONS (7)
  - Hyperthyroidism [Unknown]
  - Inappropriate schedule of product administration [Unknown]
  - Myasthenia gravis [Unknown]
  - Feeling jittery [Unknown]
  - Sinusitis [Unknown]
  - Sinus disorder [Unknown]
  - Heart rate increased [Unknown]
